FAERS Safety Report 8182453 (Version 6)
Quarter: 2012Q4

REPORT INFORMATION
  Report Type: Report from Study
  Country: CA (occurrence: CA)
  Receive Date: 20111015
  Receipt Date: 20121120
  Transmission Date: 20130627
  Serious: Yes (Hospitalization, Other)
  Sender: FDA-Public Use
  Company Number: CA-ROCHE-1001767

PATIENT
  Sex: Male

DRUGS (4)
  1. OMALIZUMAB [Suspect]
     Indication: ASTHMA
     Route: 058
     Dates: start: 20090921
  2. ADVAIR [Concomitant]
  3. SINGULAIR [Concomitant]
  4. NORVASC [Concomitant]

REACTIONS (5)
  - Urinary tract infection [Unknown]
  - Sepsis [Unknown]
  - Parkinson^s disease [Not Recovered/Not Resolved]
  - Oedema peripheral [Unknown]
  - Ear infection [Recovered/Resolved]
